FAERS Safety Report 16211416 (Version 1)
Quarter: 2019Q2

REPORT INFORMATION
  Report Type: Spontaneous
  Country: US (occurrence: US)
  Receive Date: 20190417
  Receipt Date: 20190417
  Transmission Date: 20190711
  Serious: Yes (Other)
  Sender: FDA-Public Use
  Company Number: None

PATIENT
  Age: 63 Year
  Sex: Female
  Weight: 99.9 kg

DRUGS (10)
  1. TRAMADOL. [Concomitant]
     Active Substance: TRAMADOL
  2. VITAMIN B12 [Concomitant]
     Active Substance: CYANOCOBALAMIN
  3. SPRYCEL [Suspect]
     Active Substance: DASATINIB
     Indication: LYMPHOCYTIC LEUKAEMIA
     Route: 048
     Dates: start: 20190116
  4. DICLOFENAC SODIUM. [Concomitant]
     Active Substance: DICLOFENAC SODIUM
  5. TAMOXIFEN [Concomitant]
     Active Substance: TAMOXIFEN
  6. BISACODYL. [Concomitant]
     Active Substance: BISACODYL
  7. MULTIVITAMIN [Concomitant]
     Active Substance: VITAMINS
  8. DOCUSATE [Concomitant]
     Active Substance: DOCUSATE
  9. SENNA [Concomitant]
     Active Substance: SENNA LEAF\SENNOSIDES\SENNOSIDES A AND B
  10. VITAMIN C [Concomitant]
     Active Substance: ASCORBIC ACID

REACTIONS (1)
  - Disease progression [None]
